FAERS Safety Report 20007988 (Version 1)
Quarter: 2021Q4

REPORT INFORMATION
  Report Type: Report from Study
  Country: JP (occurrence: JP)
  Receive Date: 20211028
  Receipt Date: 20211028
  Transmission Date: 20220303
  Serious: Yes (Other)
  Sender: FDA-Public Use
  Company Number: JP-002147023-NVSJ2020JP001365

PATIENT

DRUGS (5)
  1. PASIREOTIDE [Suspect]
     Active Substance: PASIREOTIDE
     Indication: Pituitary-dependent Cushing^s syndrome
     Dosage: 10 MILLIGRAM ONCE EVERY 4 WEEKS
     Route: 030
     Dates: start: 20190128
  2. PASIREOTIDE [Suspect]
     Active Substance: PASIREOTIDE
     Dosage: 10 MILLIGRAM
     Route: 030
     Dates: start: 20191021
  3. PASIREOTIDE [Suspect]
     Active Substance: PASIREOTIDE
     Dosage: 10 MILLIGRAM
     Route: 030
     Dates: start: 20191120
  4. PASIREOTIDE [Suspect]
     Active Substance: PASIREOTIDE
     Dosage: 10 MILLIGRAM
     Route: 030
     Dates: start: 20191219
  5. PASIREOTIDE [Suspect]
     Active Substance: PASIREOTIDE
     Dosage: 10 MILLIGRAM
     Route: 030
     Dates: start: 20200116

REACTIONS (3)
  - Diabetes mellitus [Not Recovered/Not Resolved]
  - Malaise [Recovered/Resolved]
  - Toxic skin eruption [Not Recovered/Not Resolved]

NARRATIVE: CASE EVENT DATE: 20190214
